FAERS Safety Report 8397068-7 (Version None)
Quarter: 2012Q2

REPORT INFORMATION
  Report Type: 
  Country: None (occurrence: None)
  Receive Date: 20120530
  Receipt Date: 20120506
  Transmission Date: 20120825
  Serious: No
  Sender: FDA-Public Use
  Company Number: US-BAYER-2012-048185

PATIENT

DRUGS (3)
  1. UNKNOWN [Concomitant]
     Dosage: 2 U, UNK
  2. ALEVE (CAPLET) [Suspect]
     Dosage: 3 U, UNK
     Route: 048
  3. UNKNOWN [Concomitant]

REACTIONS (2)
  - FEELING ABNORMAL [None]
  - SLEEP DISORDER [None]
